FAERS Safety Report 6197421-6 (Version None)
Quarter: 2009Q2

REPORT INFORMATION
  Report Type: 
  Country: None (occurrence: None)
  Receive Date: 20090521
  Receipt Date: 20090518
  Transmission Date: 20091009
  Serious: Yes (Hospitalization, Other)
  Sender: FDA-Public Use
  Company Number: US-ALLERGAN-0906980US

PATIENT
  Age: 55 Year
  Sex: Male

DRUGS (1)
  1. PRED FORTE [Suspect]
     Indication: DRUG USE FOR UNKNOWN INDICATION
     Dosage: UNK, UNKNOWN
     Route: 047
     Dates: start: 20081222

REACTIONS (2)
  - DEPRESSION [None]
  - SUICIDAL IDEATION [None]
